FAERS Safety Report 17840758 (Version 1)
Quarter: 2020Q2

REPORT INFORMATION
  Report Type: Spontaneous
  Country: CN (occurrence: CN)
  Receive Date: 20200529
  Receipt Date: 20200529
  Transmission Date: 20200714
  Serious: Yes (Other)
  Sender: FDA-Public Use
  Company Number: NVSC2020CN146369

PATIENT

DRUGS (2)
  1. CYCLOPHOSPHAMIDE. [Suspect]
     Active Substance: CYCLOPHOSPHAMIDE
     Indication: GLOMERULONEPHRITIS MEMBRANOUS
     Dosage: 750 MG/M2 BODY SURFACE ONCE EVERY 4 WEEKS (CUMULATIVE DOSAGE NO MORE THAN 8G)
     Route: 042
  2. PREDNISONE. [Suspect]
     Active Substance: PREDNISONE
     Indication: GLOMERULONEPHRITIS MEMBRANOUS
     Dosage: 0.8-1.0 MG/KG PER DAY (NO MORE THAN 60 MG/DAY)
     Route: 048

REACTIONS (1)
  - Pulmonary embolism [Unknown]
